FAERS Safety Report 5348986-5 (Version None)
Quarter: 2007Q2

REPORT INFORMATION
  Report Type: 
  Country: None (occurrence: None)
  Receive Date: 20070607
  Receipt Date: 20070524
  Transmission Date: 20071010
  Serious: Yes (Other)
  Sender: FDA-Public Use
  Company Number: US-JNJFOC-20070506999

PATIENT
  Age: 37 Year
  Sex: Female

DRUGS (1)
  1. ULTRAM [Suspect]
     Indication: BACK PAIN
     Route: 065

REACTIONS (2)
  - ALTERED VISUAL DEPTH PERCEPTION [None]
  - ROAD TRAFFIC ACCIDENT [None]
